FAERS Safety Report 8900723 (Version 2)
Quarter: 2012Q4

REPORT INFORMATION
  Report Type: Report from Study
  Country: DE (occurrence: DE)
  Receive Date: 20121109
  Receipt Date: 20121114
  Transmission Date: 20130627
  Serious: Yes (Hospitalization)
  Sender: FDA-Public Use
  Company Number: DE-ROCHE-1153509

PATIENT
  Sex: Female
  Weight: 92 kg

DRUGS (1)
  1. RITUXIMAB [Suspect]
     Indication: RHEUMATOID ARTHRITIS
     Route: 042
     Dates: start: 20110928, end: 20120313

REACTIONS (3)
  - Sinus operation [Recovered/Resolved]
  - Nasal septal operation [Recovered/Resolved]
  - Sinusitis [Unknown]
